FAERS Safety Report 4867994-1 (Version None)
Quarter: 2005Q4

REPORT INFORMATION
  Report Type: 
  Country: None (occurrence: None)
  Receive Date: 20051229
  Receipt Date: 20051221
  Transmission Date: 20060501
  Serious: Yes (Disabling)
  Sender: FDA-Public Use
  Company Number: RO-JNJFOC-20051204738

PATIENT
  Sex: Female
  Weight: 52 kg

DRUGS (2)
  1. REMICADE [Suspect]
     Dosage: 4 INFUSIONS
     Route: 042
  2. METHOTREXATE [Concomitant]
     Route: 048
     Dates: start: 20030101, end: 20051216

REACTIONS (1)
  - DISSEMINATED TUBERCULOSIS [None]
